FAERS Safety Report 5601850-6 (Version None)
Quarter: 2008Q1

REPORT INFORMATION
  Report Type: 
  Country: None (occurrence: None)
  Receive Date: 20080124
  Receipt Date: 20080112
  Transmission Date: 20080703
  Serious: Yes (Other)
  Sender: FDA-Public Use
  Company Number: US-PFIZER INC-2007100920

PATIENT
  Age: 66 Year
  Sex: Female
  Weight: 127 kg

DRUGS (4)
  1. LYRICA [Suspect]
  2. HYDROCODONE BITARTRATE [Concomitant]
  3. TRAMADOL HCL [Concomitant]
  4. ALL OTHER THERAPEUTIC PRODUCTS [Concomitant]

REACTIONS (2)
  - ASTHENIA [None]
  - PERONEAL NERVE PALSY [None]
